FAERS Safety Report 4668715-8 (Version None)
Quarter: 2005Q2

REPORT INFORMATION
  Report Type: 
  Country: None (occurrence: None)
  Receive Date: 20050519
  Receipt Date: 20050507
  Transmission Date: 20051028
  Serious: Yes (Hospitalization, Other)
  Sender: FDA-Public Use
  Company Number: 2005062849

PATIENT

DRUGS (6)
  1. XANAX [Suspect]
     Indication: ANXIETY
     Dosage: 0.5 MG, ORAL
     Route: 048
  2. NORVASC [Suspect]
     Indication: HYPERTENSION
     Dosage: 5 MG (5 MG, 1 IN 1 D), ORAL
     Route: 048
  3. ATENOLOL [Concomitant]
  4. HYDROCHLOROTHIAZIDE [Concomitant]
  5. LANOXIN [Concomitant]
  6. LEVOTHYROXINE SODIUM [Concomitant]

REACTIONS (13)
  - ANXIETY [None]
  - APHTHOUS STOMATITIS [None]
  - BLOOD POTASSIUM DECREASED [None]
  - CHEILITIS [None]
  - DYSPHAGIA [None]
  - FALL [None]
  - FEAR [None]
  - HYPERTENSION [None]
  - INJURY [None]
  - OEDEMA PERIPHERAL [None]
  - PHARMACEUTICAL PRODUCT COMPLAINT [None]
  - STOMATITIS [None]
  - THROAT IRRITATION [None]
